FAERS Safety Report 9479299 (Version 1)
Quarter: 2013Q3

REPORT INFORMATION
  Report Type: Spontaneous
  Country: FR (occurrence: FR)
  Receive Date: 20130827
  Receipt Date: 20130827
  Transmission Date: 20140515
  Serious: Yes (Other)
  Sender: FDA-Public Use
  Company Number: FR-WATSON-2013-14955

PATIENT
  Age: 32 Year
  Sex: Female

DRUGS (3)
  1. BACLOFEN (UNKNOWN) [Suspect]
     Indication: SUICIDE ATTEMPT
     Dosage: UNK
     Route: 048
  2. DITROPAN [Suspect]
     Indication: SUICIDE ATTEMPT
     Dosage: UNK
     Route: 065
  3. TEMESTA /00273201/ [Suspect]
     Indication: SUICIDE ATTEMPT
     Dosage: UNK
     Route: 065

REACTIONS (2)
  - Coma [Unknown]
  - Mydriasis [Unknown]
